FAERS Safety Report 8480879-7 (Version None)
Quarter: 2012Q2

REPORT INFORMATION
  Report Type: 
  Country: None (occurrence: None)
  Receive Date: 20120630
  Receipt Date: 20120618
  Transmission Date: 20120825
  Serious: Yes (Disabling, Other)
  Sender: FDA-Public Use
  Company Number: CH-ACCORD-013853

PATIENT
  Age: 62 Year
  Sex: Female

DRUGS (7)
  1. PREDNISONE TAB [Suspect]
     Indication: HODGKIN'S DISEASE RECURRENT
     Dosage: 8 CYCLES
  2. ETOPOSIDE [Suspect]
     Indication: HODGKIN'S DISEASE RECURRENT
  3. PROCARBAZINE HYDROCHLORIDE [Suspect]
     Indication: HODGKIN'S DISEASE RECURRENT
     Dosage: 8 CYCLES
  4. DOXORUBICIN HCL [Suspect]
     Indication: HODGKIN'S DISEASE RECURRENT
     Dosage: 8 CYCLES
  5. VINCRISTINE [Suspect]
     Indication: HODGKIN'S DISEASE RECURRENT
     Dosage: 8 CYCLES
  6. CYCLOPHOSPHAMIDE [Suspect]
     Indication: HODGKIN'S DISEASE RECURRENT
     Dosage: 8 CYCLES
  7. BLEOMYCIN SULFATE [Suspect]
     Indication: HODGKIN'S DISEASE RECURRENT
     Dosage: 8 CYCLES

REACTIONS (3)
  - JC VIRUS INFECTION [None]
  - OFF LABEL USE [None]
  - PROGRESSIVE MULTIFOCAL LEUKOENCEPHALOPATHY [None]
